FAERS Safety Report 9253310 (Version 1)
Quarter: 2013Q2

REPORT INFORMATION
  Report Type: Spontaneous
  Country: GB (occurrence: GB)
  Receive Date: 20130424
  Receipt Date: 20130424
  Transmission Date: 20140414
  Serious: Yes (Other)
  Sender: FDA-Public Use
  Company Number: GB-MYLANLABS-2013S1008202

PATIENT
  Age: 27 Year
  Sex: Male
  Weight: 95 kg

DRUGS (2)
  1. RISPERIDONE [Suspect]
     Indication: AGITATION
     Route: 048
     Dates: start: 20130403, end: 20130405
  2. RISPERIDONE [Suspect]
     Indication: PARANOID PERSONALITY DISORDER
     Route: 048
     Dates: start: 20130403, end: 20130405

REACTIONS (2)
  - Priapism [Recovered/Resolved]
  - Pain [Recovered/Resolved]
